FAERS Safety Report 15272556 (Version 1)
Quarter: 2018Q3

REPORT INFORMATION
  Report Type: Spontaneous
  Country: US (occurrence: US)
  Receive Date: 20180813
  Receipt Date: 20180813
  Transmission Date: 20181010
  Serious: No
  Sender: FDA-Public Use
  Company Number: US-PFIZER INC-2018322563

PATIENT
  Age: 74 Year
  Sex: Female

DRUGS (1)
  1. LYRICA [Suspect]
     Active Substance: PREGABALIN
     Indication: DIABETIC NEUROPATHY
     Dosage: 50 MG, 2X/DAY
     Route: 048

REACTIONS (6)
  - Asthenia [Recovered/Resolved]
  - Nervousness [Recovered/Resolved]
  - Thinking abnormal [Unknown]
  - Drug effect incomplete [Unknown]
  - Withdrawal syndrome [Recovered/Resolved]
  - Malaise [Unknown]
